FAERS Safety Report 8237323-4 (Version None)
Quarter: 2012Q1

REPORT INFORMATION
  Report Type: 
  Country: None (occurrence: None)
  Receive Date: 20120327
  Receipt Date: 20120316
  Transmission Date: 20120608
  Serious: Yes (Death, Hospitalization)
  Sender: FDA-Public Use
  Company Number: JP-BRISTOL-MYERS SQUIBB COMPANY-16362220

PATIENT
  Age: 72 Year
  Sex: Female
  Weight: 41 kg

DRUGS (18)
  1. COTRIM [Suspect]
     Indication: PNEUMOCYSTIS JIROVECI PNEUMONIA
     Dates: start: 20110905
  2. LANSOPRAZOLE [Concomitant]
     Indication: GASTRITIS
  3. GASMOTIN [Concomitant]
     Indication: GASTRITIS
  4. PLETAL [Concomitant]
     Indication: PROPHYLAXIS
  5. ALENDRONATE SODIUM [Concomitant]
     Indication: OSTEOPOROSIS
  6. METHOTREXATE [Suspect]
     Indication: RHEUMATOID ARTHRITIS
     Dates: start: 20040101, end: 20110920
  7. PREDNISOLONE [Suspect]
     Indication: RHEUMATOID ARTHRITIS
     Dosage: 1 DF : 5-15MG,BEFORE ABATACEPT FIRST ADMINISTRATION-12SEP11,13SEP11-04OCT11;40MG
     Route: 048
     Dates: end: 20110912
  8. BACTRIM [Suspect]
     Indication: PNEUMOCYSTIS JIROVECI PNEUMONIA
     Dates: start: 20110822
  9. CELECOXIB [Concomitant]
     Indication: RHEUMATOID ARTHRITIS
  10. CYANOCOBALAMIN [Concomitant]
     Indication: STOMATITIS
  11. MAGMITT [Concomitant]
     Indication: CONSTIPATION
  12. ORENCIA [Suspect]
     Indication: RHEUMATOID ARTHRITIS
     Dosage: 24MAY11,07JUN11
     Route: 042
     Dates: start: 20110510
  13. LIVALO [Concomitant]
     Indication: HYPERLIPIDAEMIA
  14. GASTROM [Concomitant]
     Indication: GASTRITIS
  15. DEPAS [Concomitant]
     Indication: INSOMNIA
  16. PREDNISOLONE SODIUM SUCCINATE INJ [Suspect]
     Indication: RHEUMATOID ARTHRITIS
     Dates: start: 20110913, end: 20111004
  17. ALPRAZOLAM [Concomitant]
     Indication: ANXIETY
  18. TACROLIMUS [Suspect]
     Indication: RHEUMATOID ARTHRITIS

REACTIONS (4)
  - DISSEMINATED INTRAVASCULAR COAGULATION [None]
  - THROMBOTIC THROMBOCYTOPENIC PURPURA [None]
  - PNEUMOCYSTIS JIROVECI PNEUMONIA [None]
  - CRYPTOCOCCOSIS [None]
